FAERS Safety Report 7277253-8 (Version None)
Quarter: 2011Q1

REPORT INFORMATION
  Report Type: 
  Country: None (occurrence: None)
  Receive Date: 20110202
  Receipt Date: 20110202
  Transmission Date: 20110831
  Serious: No
  Sender: FDA-Public Use
  Company Number: None

PATIENT
  Age: 26 Year
  Sex: Male
  Weight: 67.586 kg

DRUGS (1)
  1. DEMEROL [Suspect]
     Indication: PROCEDURAL PAIN
     Dosage: 12.5MG ONCE IV
     Route: 042
     Dates: start: 20110120, end: 20110120

REACTIONS (2)
  - RASH MACULO-PAPULAR [None]
  - INJECTION SITE RASH [None]
